FAERS Safety Report 4671128-6 (Version None)
Quarter: 2005Q2

REPORT INFORMATION
  Report Type: 
  Country: None (occurrence: None)
  Receive Date: 20050523
  Receipt Date: 20050511
  Transmission Date: 20051028
  Serious: Yes (Hospitalization)
  Sender: FDA-Public Use
  Company Number: STA-AE-05-014

PATIENT
  Age: 28 Year
  Sex: Female
  Weight: 50 kg

DRUGS (5)
  1. PYRAZINAMIDE [Suspect]
     Indication: TUBERCULOSIS
     Dosage: 1500 MG DAILY
     Dates: start: 20011015
  2. CIPROFLOXACIN HCL [Suspect]
     Indication: TUBERCULOSIS
     Dosage: 500 MG TWICE DAILY
  3. ISONIOZID [Concomitant]
  4. RIFAMPIN [Concomitant]
  5. ETHAMBUTOL HCL [Concomitant]

REACTIONS (18)
  - ASCITES [None]
  - DIZZINESS [None]
  - ENCEPHALOPATHY [None]
  - EOSINOPHILIA [None]
  - GENERALISED OEDEMA [None]
  - HEPATIC NECROSIS [None]
  - HEPATOMEGALY [None]
  - HYPERPYREXIA [None]
  - HYPOACUSIS [None]
  - HYPOTENSION [None]
  - INFLUENZA LIKE ILLNESS [None]
  - LEUKOCYTOSIS [None]
  - LIVER TRANSPLANT [None]
  - PATHOGEN RESISTANCE [None]
  - POST PROCEDURAL COMPLICATION [None]
  - RASH GENERALISED [None]
  - RASH MACULO-PAPULAR [None]
  - TINNITUS [None]
